FAERS Safety Report 8874172 (Version 2)
Quarter: 2012Q4

REPORT INFORMATION
  Report Type: 
  Country: US (occurrence: US)
  Receive Date: 20121023
  Receipt Date: 20121121
  Transmission Date: 20130627
  Serious: No
  Sender: FDA-Public Use
  Company Number: US-PFIZER INC-2012263966

PATIENT
  Age: 59 Year
  Sex: Male
  Weight: 81.63 kg

DRUGS (4)
  1. LYRICA [Suspect]
     Indication: NEUROPATHY PERIPHERAL
     Dosage: 75 mg, UNK
     Route: 048
     Dates: start: 201105, end: 2011
  2. LYRICA [Suspect]
     Dosage: 75 mg, UNK
     Route: 048
     Dates: start: 2012, end: 2012
  3. LYRICA [Suspect]
     Dosage: 50 mg, daily
     Route: 048
     Dates: start: 201210
  4. AMBIEN [Concomitant]
     Indication: SLEEP PROBLEM
     Dosage: as needed by splitting 5 mg tablets into half
     Route: 048

REACTIONS (3)
  - Drug ineffective [Unknown]
  - Dizziness [Not Recovered/Not Resolved]
  - Pain in extremity [Unknown]
